FAERS Safety Report 10403617 (Version 1)
Quarter: 2014Q3

REPORT INFORMATION
  Report Type: Spontaneous
  Country: GB (occurrence: GB)
  Receive Date: 20140822
  Receipt Date: 20140822
  Transmission Date: 20150326
  Serious: Yes (Other)
  Sender: FDA-Public Use
  Company Number: PHHY2014GB101584

PATIENT
  Age: 35 Year
  Sex: Female

DRUGS (7)
  1. BUPIVACAINE [Suspect]
     Active Substance: BUPIVACAINE
     Dosage: 2.8 ML, UNK
  2. DIAMORPHINE [Suspect]
     Active Substance: DIACETYLMORPHINE
     Dosage: 400 UG, UNK
  3. HARTMANN SOLN [Suspect]
     Active Substance: CALCIUM CHLORIDE\POTASSIUM CHLORIDE\SODIUM CHLORIDE\SODIUM LACTATE
     Route: 042
  4. PHENYLEPHRINE [Suspect]
     Active Substance: PHENYLEPHRINE\PHENYLEPHRINE HYDROCHLORIDE
     Dosage: 100 UG/ML, UNK
  5. SYNTOCINON [Suspect]
     Active Substance: OXYTOCIN
     Dosage: 5 U, UNK
     Route: 042
  6. CEFUROXIME. [Suspect]
     Active Substance: CEFUROXIME
     Dosage: 1.5 G, UNK
     Route: 042
  7. ONDANSETRON [Suspect]
     Active Substance: ONDANSETRON
     Dosage: 4 MG, UNK

REACTIONS (4)
  - Ventricular tachycardia [Recovering/Resolving]
  - Maternal exposure during pregnancy [Unknown]
  - Heart rate decreased [Unknown]
  - Normal newborn [Unknown]
